FAERS Safety Report 4264164-5 (Version None)
Quarter: 2004Q1

REPORT INFORMATION
  Report Type: 
  Country: None (occurrence: None)
  Receive Date: 20040104
  Receipt Date: 20031223
  Transmission Date: 20041129
  Serious: Yes (Other)
  Sender: FDA-Public Use
  Company Number: US-JNJFOC-20030902451

PATIENT
  Age: 67 Year
  Sex: Male
  Weight: 95.709 kg

DRUGS (7)
  1. REMICADE [Suspect]
     Indication: RHEUMATOID ARTHRITIS
     Dosage: 400 MG, 8 IN , INTRAVENOUS
     Route: 042
     Dates: start: 20020418, end: 20030731
  2. PACIFIC ISLAND PALM OIL (ALL OTHER THERAPEUTIC PRODUCTS) [Suspect]
     Indication: DRUG USE FOR UNKNOWN INDICATION
  3. ATENOLOL [Concomitant]
  4. METHOTREXATE [Concomitant]
  5. INDERAL [Concomitant]
  6. FLOMAX [Concomitant]
  7. PRINZIDE [Concomitant]

REACTIONS (4)
  - EOSINOPHILIA [None]
  - HEPATIC CIRRHOSIS [None]
  - HEPATITIS [None]
  - RASH [None]
